FAERS Safety Report 8550402-7 (Version None)
Quarter: 2012Q3

REPORT INFORMATION
  Report Type: 
  Country: None (occurrence: None)
  Receive Date: 20120718
  Receipt Date: 20120709
  Transmission Date: 20120928
  Serious: Yes (Life-Threatening, Hospitalization)
  Sender: FDA-Public Use
  Company Number: 2012-000959

PATIENT
  Age: 52 Year
  Sex: Female
  Weight: 48.5 kg

DRUGS (13)
  1. CALCIUM CITRATE + D (CALCIUM CITRATE, COLECALCIFEROL) [Concomitant]
  2. BORON [Concomitant]
  3. ALDACTONE [Concomitant]
  4. ESTRADIOL [Concomitant]
  5. ATELVIA [Suspect]
     Indication: OSTEOPENIA
     Dosage: 35 MG ONCE WEEKLY, ONE DOSE ONLY, ORAL
     Route: 048
     Dates: start: 20120228, end: 20120228
  6. ESTRATEST (ESTROGENS ESTERIFIED, METHYTESTOSTERONE) [Concomitant]
  7. RITALIN [Concomitant]
  8. K (POTASSIUM) [Concomitant]
  9. TESTOSTERONE [Concomitant]
  10. VITAMINS NOS [Concomitant]
  11. ALBUTEROL [Concomitant]
  12. VITAMIN K2 (MENAQUINONE) [Concomitant]
  13. MAGNESIUM [Concomitant]

REACTIONS (38)
  - DIZZINESS [None]
  - MUSCLE SPASMS [None]
  - JOINT SWELLING [None]
  - FLATULENCE [None]
  - DYSPNOEA [None]
  - HYPOAESTHESIA [None]
  - PAINFUL RESPIRATION [None]
  - HEADACHE [None]
  - MUSCLE TWITCHING [None]
  - DEHYDRATION [None]
  - MUSCULAR WEAKNESS [None]
  - RHINORRHOEA [None]
  - BURNOUT SYNDROME [None]
  - INFLUENZA LIKE ILLNESS [None]
  - DECREASED APPETITE [None]
  - FAECES DISCOLOURED [None]
  - MYALGIA [None]
  - BONE PAIN [None]
  - TREMOR [None]
  - WEIGHT INCREASED [None]
  - CHEST DISCOMFORT [None]
  - ATAXIA [None]
  - ARTHRALGIA [None]
  - NON-CARDIAC CHEST PAIN [None]
  - CHEST PAIN [None]
  - FEELING COLD [None]
  - JOINT STIFFNESS [None]
  - BACK PAIN [None]
  - HYPOPNOEA [None]
  - PYREXIA [None]
  - OESOPHAGITIS [None]
  - SENSATION OF HEAVINESS [None]
  - OXYGEN SATURATION DECREASED [None]
  - PARAESTHESIA [None]
  - EPISTAXIS [None]
  - FEELING OF BODY TEMPERATURE CHANGE [None]
  - WHITE BLOOD CELL COUNT INCREASED [None]
  - ABDOMINAL PAIN [None]
